FAERS Safety Report 6135822-2 (Version None)
Quarter: 2009Q1

REPORT INFORMATION
  Report Type: 
  Country: None (occurrence: None)
  Receive Date: 20090327
  Receipt Date: 20090319
  Transmission Date: 20090719
  Serious: Yes (Hospitalization)
  Sender: FDA-Public Use
  Company Number: FR-B.I. PHARMACEUTICALS,INC./RIDGEFIELD-2009-FF-00215FF

PATIENT
  Age: 77 Year
  Sex: Male

DRUGS (4)
  1. SPIRIVA [Suspect]
     Dosage: 18MCG
     Route: 055
  2. SPIRIVA [Suspect]
     Dosage: 18MCG
     Route: 048
  3. EUPANTOL [Concomitant]
  4. SERETIDE [Concomitant]

REACTIONS (2)
  - DRUG DISPENSING ERROR [None]
  - FEMORAL NECK FRACTURE [None]
